FAERS Safety Report 23480068 (Version 1)
Quarter: 2024Q1

REPORT INFORMATION
  Report Type: Report from Study
  Country: US (occurrence: US)
  Receive Date: 20240205
  Receipt Date: 20240205
  Transmission Date: 20240409
  Serious: Yes (Hospitalization)
  Sender: FDA-Public Use
  Company Number: US-ORG100014127-2023001081

PATIENT
  Age: 54 Year
  Sex: Male

DRUGS (15)
  1. LYSODREN [Suspect]
     Active Substance: MITOTANE
     Indication: Adrenocortical carcinoma
     Dosage: 4000 MG DAILY
     Route: 048
     Dates: start: 20130101
  2. AMLODIPINE BESYLATE [Concomitant]
     Active Substance: AMLODIPINE BESYLATE
     Indication: Product used for unknown indication
  3. DABIGATRAN [Concomitant]
     Active Substance: DABIGATRAN
     Indication: Product used for unknown indication
  4. Fludrocortisone 0.1mg tablets [Concomitant]
     Indication: Product used for unknown indication
  5. FLUOXETINE HYDROCHLORIDE [Concomitant]
     Active Substance: FLUOXETINE HYDROCHLORIDE
     Indication: Product used for unknown indication
  6. Hydrocortisone 10mg tablets [Concomitant]
     Indication: Product used for unknown indication
  7. Labetalol 300mg tablets [Concomitant]
     Indication: Product used for unknown indication
  8. Levothyroxine 0.150mg tablet [Concomitant]
     Indication: Product used for unknown indication
  9. LISINOPRIL [Concomitant]
     Active Substance: LISINOPRIL
     Indication: Product used for unknown indication
  10. Omeprazole 20mg tablets [Concomitant]
     Indication: Product used for unknown indication
  11. phospha 250 neutral tablet [Concomitant]
     Indication: Product used for unknown indication
  12. Ropinirole 0.5mg tablet [Concomitant]
     Indication: Product used for unknown indication
  13. TRAZODONE [Concomitant]
     Active Substance: TRAZODONE HYDROCHLORIDE
     Indication: Product used for unknown indication
  14. Valaciclovir 1 g tablets [Concomitant]
     Indication: Product used for unknown indication
  15. Vitamin D3 2000units capsule [Concomitant]
     Indication: Product used for unknown indication

REACTIONS (1)
  - Nausea [Recovered/Resolved]

NARRATIVE: CASE EVENT DATE: 20231204
